FAERS Safety Report 11602834 (Version 1)
Quarter: 2015Q4

REPORT INFORMATION
  Report Type: Spontaneous
  Country: US (occurrence: US)
  Receive Date: 20151006
  Receipt Date: 20151006
  Transmission Date: 20160304
  Serious: No
  Sender: FDA-Public Use
  Company Number: US-AMGEN-USASP2015076756

PATIENT
  Age: 60 Year
  Sex: Female
  Weight: 65.31 kg

DRUGS (1)
  1. PROLIA [Suspect]
     Active Substance: DENOSUMAB
     Indication: OSTEOPOROSIS
     Dosage: 60 MG, ONE TIME DOSE
     Route: 030
     Dates: start: 2012

REACTIONS (3)
  - Oropharyngeal pain [Unknown]
  - Incorrect route of drug administration [Unknown]
  - Myalgia [Recovered/Resolved]

NARRATIVE: CASE EVENT DATE: 20150728
